FAERS Safety Report 11420635 (Version 3)
Quarter: 2015Q4

REPORT INFORMATION
  Report Type: Report from Study
  Country: US (occurrence: US)
  Receive Date: 20150826
  Receipt Date: 20151012
  Transmission Date: 20160304
  Serious: No
  Sender: FDA-Public Use
  Company Number: US-AMGEN-USASP2015085900

PATIENT
  Age: 56 Year
  Sex: Female

DRUGS (1)
  1. ENBREL [Suspect]
     Active Substance: ETANERCEPT
     Indication: RHEUMATOID ARTHRITIS
     Dosage: 50 MG, ONCE WEEKLY
     Route: 065
     Dates: start: 20150728

REACTIONS (5)
  - Joint swelling [Unknown]
  - Fatigue [Unknown]
  - Injection site discolouration [Recovered/Resolved]
  - Injection site reaction [Recovered/Resolved]
  - Headache [Unknown]

NARRATIVE: CASE EVENT DATE: 2015
